FAERS Safety Report 8242975-9 (Version None)
Quarter: 2012Q1

REPORT INFORMATION
  Report Type: 
  Country: None (occurrence: None)
  Receive Date: 20120329
  Receipt Date: 20120322
  Transmission Date: 20120608
  Serious: Yes (Hospitalization)
  Sender: FDA-Public Use
  Company Number: BR-PFIZER INC-2012075677

PATIENT
  Age: 75 Year
  Sex: Female
  Weight: 74 kg

DRUGS (2)
  1. LYRICA [Suspect]
     Indication: SPINAL DISORDER
     Dosage: 75 MG, 2X/DAY
     Route: 048
     Dates: start: 20120101
  2. OXYTOCIN [Concomitant]
     Indication: SPINAL DISORDER
     Dosage: UNK

REACTIONS (1)
  - NERVOUS SYSTEM DISORDER [None]
